FAERS Safety Report 4887054-3 (Version None)
Quarter: 2006Q1

REPORT INFORMATION
  Report Type: 
  Country: None (occurrence: None)
  Receive Date: 20060120
  Receipt Date: 20011003
  Transmission Date: 20060701
  Serious: Yes (Death, Hospitalization, Other)
  Sender: FDA-Public Use
  Company Number: US-MERCK-01100590

PATIENT
  Age: 50 Year
  Sex: Female
  Weight: 91 kg

DRUGS (2)
  1. VIOXX [Suspect]
     Indication: PAIN
     Route: 048
     Dates: start: 20000121, end: 20000926
  2. VIOXX [Suspect]
     Indication: SCLERODERMA
     Route: 048
     Dates: start: 20000121, end: 20000926

REACTIONS (32)
  - AGORAPHOBIA [None]
  - AMNESIA [None]
  - ANXIETY [None]
  - ARTHRALGIA [None]
  - CEREBROVASCULAR ACCIDENT [None]
  - CREST SYNDROME [None]
  - DEATH [None]
  - DECREASED APPETITE [None]
  - DIARRHOEA [None]
  - DISTURBANCE IN ATTENTION [None]
  - DRUG WITHDRAWAL SYNDROME [None]
  - DYSPEPSIA [None]
  - EMOTIONAL DISORDER [None]
  - FLANK PAIN [None]
  - GASTRITIS [None]
  - GASTROOESOPHAGEAL REFLUX DISEASE [None]
  - GLOMERULONEPHRITIS [None]
  - HYPERLIPIDAEMIA [None]
  - HYPOGLYCAEMIA [None]
  - MENTAL DISORDER [None]
  - NERVOUS SYSTEM DISORDER [None]
  - OBESITY [None]
  - PAIN IN EXTREMITY [None]
  - PERNICIOUS ANAEMIA [None]
  - RASH [None]
  - RENAL FAILURE [None]
  - RENAL IMPAIRMENT [None]
  - SLEEP DISORDER [None]
  - TRANSIENT ISCHAEMIC ATTACK [None]
  - TREMOR [None]
  - TUBERCULIN TEST POSITIVE [None]
  - TUBERCULOSIS [None]
